FAERS Safety Report 7014514-1 (Version None)
Quarter: 2010Q3

REPORT INFORMATION
  Report Type: 
  Country: None (occurrence: None)
  Receive Date: 20100927
  Receipt Date: 20100921
  Transmission Date: 20110219
  Serious: Yes (Hospitalization, Other)
  Sender: FDA-Public Use
  Company Number: US-B.I. PHARMACEUTICALS,INC./RIDGEFIELD-2010-BP-10321BP

PATIENT
  Sex: Female

DRUGS (2)
  1. SPIRIVA [Suspect]
     Indication: CHRONIC OBSTRUCTIVE PULMONARY DISEASE
     Dosage: 18 MCG
     Route: 055
     Dates: start: 20080101
  2. PREDNISONE [Concomitant]
     Indication: FIBROMYALGIA
     Dosage: 10 MG
     Route: 048

REACTIONS (3)
  - ABDOMINAL DISCOMFORT [None]
  - BRAIN NEOPLASM [None]
  - DYSPNOEA [None]
